FAERS Safety Report 17724388 (Version 1)
Quarter: 2020Q2

REPORT INFORMATION
  Report Type: Spontaneous
  Country: AU (occurrence: AU)
  Receive Date: 20200429
  Receipt Date: 20200429
  Transmission Date: 20200714
  Serious: Yes (Other)
  Sender: FDA-Public Use
  Company Number: AU-ASTRAZENECA-2020SE53972

PATIENT
  Age: 66 Year
  Sex: Male

DRUGS (1)
  1. DURVALUMAB. [Suspect]
     Active Substance: DURVALUMAB
     Indication: LUNG ADENOCARCINOMA STAGE III
     Dosage: 10 MG/KG EVERY SECOND WEEK STARTED 1 MONTH AFTER RADIOTHERAPY
     Route: 042

REACTIONS (2)
  - Myositis [Recovering/Resolving]
  - Myasthenia gravis [Recovering/Resolving]
